FAERS Safety Report 16144863 (Version 1)
Quarter: 2019Q2

REPORT INFORMATION
  Report Type: Other
  Country: GB (occurrence: GB)
  Receive Date: 20190402
  Receipt Date: 20190402
  Transmission Date: 20190711
  Serious: No
  Sender: FDA-Public Use
  Company Number: GB-LUPIN PHARMACEUTICALS INC.-2018-06955

PATIENT
  Age: 59 Year
  Sex: Female
  Weight: 72 kg

DRUGS (4)
  1. ACULAR [Concomitant]
     Active Substance: KETOROLAC TROMETHAMINE
     Indication: ILL-DEFINED DISORDER
     Dosage: 1 GTT, TID (ONE DROP 3 TIMES/DAY BOTH EYES)
     Route: 047
     Dates: start: 20180801
  2. VENTOLIN [Concomitant]
     Active Substance: ALBUTEROL SULFATE
     Indication: ILL-DEFINED DISORDER
     Dosage: UNK (INHALE 2 DOSES AS NEEDED)
     Route: 055
     Dates: start: 20161207, end: 20180706
  3. SERTRALINE [Suspect]
     Active Substance: SERTRALINE HYDROCHLORIDE
     Indication: PRODUCT USED FOR UNKNOWN INDICATION
     Dosage: UNK
     Route: 065
     Dates: start: 20180912
  4. HYLO-FORTE [Concomitant]
     Active Substance: HYALURONATE SODIUM
     Indication: ILL-DEFINED DISORDER
     Dosage: 1 GTT, UNK (ONE DOP BOTH EYES AS DIRECTED)
     Route: 047
     Dates: start: 20180406

REACTIONS (1)
  - Diarrhoea [Recovering/Resolving]

NARRATIVE: CASE EVENT DATE: 20180914
